FAERS Safety Report 6984106-9 (Version None)
Quarter: 2010Q3

REPORT INFORMATION
  Report Type: 
  Country: None (occurrence: None)
  Receive Date: 20100915
  Receipt Date: 20090521
  Transmission Date: 20110219
  Serious: Yes (Hospitalization, Disabling)
  Sender: FDA-Public Use
  Company Number: US-WYE-H09453609

PATIENT
  Age: 59 Year
  Sex: Female

DRUGS (1)
  1. PRISTIQ [Suspect]
     Dosage: 50 MG, UNSPECIFIED FREQUENCY
     Route: 048
     Dates: start: 20090429

REACTIONS (1)
  - CONVULSION [None]
